FAERS Safety Report 16457422 (Version 1)
Quarter: 2019Q2

REPORT INFORMATION
  Report Type: Spontaneous
  Country: US (occurrence: US)
  Receive Date: 20190620
  Receipt Date: 20190620
  Transmission Date: 20190711
  Serious: No
  Sender: FDA-Public Use
  Company Number: US-TEVA-2019-US-1063076

PATIENT
  Sex: Male

DRUGS (2)
  1. NORTRIPTYLINE HYDROCHLORIDE,75 MG TEVA [Suspect]
     Active Substance: NORTRIPTYLINE HYDROCHLORIDE
     Indication: SLEEP DISORDER
  2. NORTRIPTYLINE HYDROCHLORIDE,75 MG TEVA [Suspect]
     Active Substance: NORTRIPTYLINE HYDROCHLORIDE
     Indication: AFFECTIVE DISORDER

REACTIONS (6)
  - Middle insomnia [Unknown]
  - Product use in unapproved indication [Unknown]
  - Drug ineffective [Unknown]
  - Headache [Unknown]
  - Palpitations [Unknown]
  - Product substitution issue [Unknown]

NARRATIVE: CASE EVENT DATE: 201906
